FAERS Safety Report 18961644 (Version 1)
Quarter: 2021Q1

REPORT INFORMATION
  Report Type: Spontaneous
  Country: CA (occurrence: CA)
  Receive Date: 20210302
  Receipt Date: 20210302
  Transmission Date: 20210420
  Serious: Yes (Other)
  Sender: FDA-Public Use
  Company Number: CA-VIFOR (INTERNATIONAL) INC.-VIT-2021-02044

PATIENT
  Age: 31 Year
  Sex: Female

DRUGS (4)
  1. OXYTOCIN. [Concomitant]
     Active Substance: OXYTOCIN
  2. VELTASSA [Suspect]
     Active Substance: PATIROMER
     Indication: PRODUCT USED FOR UNKNOWN INDICATION
     Route: 041
  3. ANALGESICS [Concomitant]
     Active Substance: UNSPECIFIED INGREDIENT
     Indication: POSTPARTUM HAEMORRHAGE
  4. SALINE [Concomitant]
     Active Substance: SODIUM CHLORIDE

REACTIONS (8)
  - Administration site discolouration [Unknown]
  - Skin discolouration [Unknown]
  - Off label use [Unknown]
  - Peripheral swelling [Unknown]
  - Instillation site pain [Unknown]
  - Surgical procedure repeated [Unknown]
  - Instillation site paraesthesia [Unknown]
  - Incorrect route of product administration [Unknown]
